FAERS Safety Report 10357052 (Version 2)
Quarter: 2014Q3

REPORT INFORMATION
  Report Type: Spontaneous
  Country: CA (occurrence: CA)
  Receive Date: 20140801
  Receipt Date: 20140814
  Transmission Date: 20150326
  Serious: Yes (Other)
  Sender: FDA-Public Use
  Company Number: CA-PFIZER INC-2014212316

PATIENT
  Age: 46 Year
  Sex: Female
  Weight: 58 kg

DRUGS (6)
  1. MS CONTIN [Concomitant]
     Active Substance: MORPHINE SULFATE
     Indication: FIBROMYALGIA
     Dosage: 15 MG , 1 TABLET 2X/DAY
     Dates: start: 20140529, end: 20140629
  2. TEVA-TRAZODONE [Concomitant]
     Indication: INSOMNIA
     Dosage: 150 MG 1 TABLET ONCE A DAY
  3. TOVIAZ [Suspect]
     Active Substance: FESOTERODINE FUMARATE
     Indication: HYPERTONIC BLADDER
     Dosage: 8 MG, 1X/DAY
     Route: 048
     Dates: start: 20140313, end: 20140623
  4. PROTYLOL [Concomitant]
     Indication: IRRITABLE BOWEL SYNDROME
     Dosage: 10 MG, 3X/DAY AS NEEDED
  5. PRO-FLUCONAZOLE [Concomitant]
     Indication: VAGINAL INFECTION
     Dosage: 150 MG , 1 TABLET (1 DOSE) AS NEEDED (TAKEN REGULARLY SEVERAL TIMES)
  6. OXAZEPAM. [Concomitant]
     Active Substance: OXAZEPAM
     Indication: INSOMNIA
     Dosage: 15 MG, 1-1.5 TABLET 1X/DAY AT BEDTIME

REACTIONS (1)
  - Urticaria thermal [Recovered/Resolved]

NARRATIVE: CASE EVENT DATE: 20140623
